FAERS Safety Report 5302938-X (Version None)
Quarter: 2007Q2

REPORT INFORMATION
  Report Type: 
  Country: None (occurrence: None)
  Receive Date: 20070420
  Receipt Date: 20070409
  Transmission Date: 20071010
  Serious: Yes (Other)
  Sender: FDA-Public Use
  Company Number: HQWYE130110APR07

PATIENT
  Sex: Female

DRUGS (1)
  1. PREMPRO [Suspect]
     Dosage: 0.625MG
     Route: 048
     Dates: start: 19980101, end: 20020101

REACTIONS (1)
  - NEOPLASM MALIGNANT [None]
